FAERS Safety Report 20861260 (Version 1)
Quarter: 2022Q2

REPORT INFORMATION
  Report Type: Spontaneous
  Country: US (occurrence: None)
  Receive Date: 20220520
  Receipt Date: 20220520
  Transmission Date: 20220720
  Serious: No
  Sender: FDA-Public Use
  Company Number: None

PATIENT
  Age: 67 Year
  Sex: Female
  Weight: 54.9 kg

DRUGS (10)
  1. KEYTRUDA [Suspect]
     Active Substance: PEMBROLIZUMAB
     Indication: Non-small cell lung cancer stage IV
     Route: 042
     Dates: start: 20200210, end: 20220309
  2. KEYTRUDA [Suspect]
     Active Substance: PEMBROLIZUMAB
     Indication: Metastases to central nervous system
  3. KEYTRUDA [Suspect]
     Active Substance: PEMBROLIZUMAB
     Indication: Lung adenocarcinoma stage IV
  4. ATORVASTATIN [Concomitant]
  5. ZYRTEC [Concomitant]
     Active Substance: CETIRIZINE HYDROCHLORIDE
  6. MYRBETRIQ [Concomitant]
     Active Substance: MIRABEGRON
  7. ARMOUR THYROID [Concomitant]
  8. CELEBREX [Concomitant]
     Active Substance: CELECOXIB
  9. ESTRADIOL TRANSDERMAL PATCH [Concomitant]
  10. LANDOPRASOLE [Concomitant]

REACTIONS (13)
  - Cellulitis [None]
  - Gingival pain [None]
  - Skin ulcer [None]
  - Stomatitis [None]
  - Toe operation [None]
  - Mallet finger [None]
  - Post procedural complication [None]
  - Transplant rejection [None]
  - Peripheral swelling [None]
  - Feeling hot [None]
  - Paraesthesia [None]
  - Inflammation [None]
  - Near death experience [None]

NARRATIVE: CASE EVENT DATE: 20220112
